FAERS Safety Report 19495150 (Version 3)
Quarter: 2021Q3

REPORT INFORMATION
  Report Type: Spontaneous
  Country: JP (occurrence: JP)
  Receive Date: 20210706
  Receipt Date: 20210805
  Transmission Date: 20211014
  Serious: Yes (Other)
  Sender: FDA-Public Use
  Company Number: JP-JNJFOC-20210710338

PATIENT
  Sex: Male

DRUGS (3)
  1. XARELTO [Suspect]
     Active Substance: RIVAROXABAN
     Indication: PRODUCT USED FOR UNKNOWN INDICATION
     Dosage: UNK
     Route: 048
     Dates: start: 2016
  2. COVID?19 VACCINE [Concomitant]
     Dosage: UNK UNK, ONCE
     Dates: start: 20210715, end: 20210715
  3. COVID?19 VACCINE [Concomitant]
     Dosage: UNK UNK, ONCE
     Dates: start: 20210623, end: 20210623

REACTIONS (5)
  - Cerebral infarction [Unknown]
  - Visual field defect [Unknown]
  - Headache [Unknown]
  - Cerebral infarction [Unknown]
  - Cerebral infarction [Unknown]

NARRATIVE: CASE EVENT DATE: 201603
